FAERS Safety Report 12309011 (Version 2)
Quarter: 2016Q2

REPORT INFORMATION
  Report Type: Spontaneous
  Country: US (occurrence: US)
  Receive Date: 20160427
  Receipt Date: 20160506
  Transmission Date: 20160815
  Serious: Yes (Other)
  Sender: FDA-Public Use
  Company Number: US-AMGEN-USASP2016050922

PATIENT
  Age: 87 Year
  Sex: Female
  Weight: 63.95 kg

DRUGS (1)
  1. PROLIA [Suspect]
     Active Substance: DENOSUMAB
     Indication: OSTEOPOROSIS POSTMENOPAUSAL
     Dosage: 60 MG, Q6MO
     Route: 058
     Dates: start: 20140614

REACTIONS (5)
  - Oral pain [Not Recovered/Not Resolved]
  - Back pain [Recovering/Resolving]
  - Dry skin [Unknown]
  - Osteonecrosis of jaw [Unknown]
  - Toothache [Unknown]

NARRATIVE: CASE EVENT DATE: 2014
